FAERS Safety Report 10474300 (Version 7)
Quarter: 2016Q4

REPORT INFORMATION
  Report Type: Spontaneous
  Country: US (occurrence: US)
  Receive Date: 20140924
  Receipt Date: 20161006
  Transmission Date: 20170206
  Serious: Yes (Hospitalization, Other)
  Sender: FDA-Public Use
  Company Number: US-PFIZER INC-2014264195

PATIENT
  Age: 62 Year
  Sex: Female
  Weight: 58.96 kg

DRUGS (4)
  1. LYRICA [Suspect]
     Active Substance: PREGABALIN
     Indication: BACK PAIN
     Dosage: 150 MG, 3X/DAY
     Route: 048
     Dates: start: 20141119
  2. LYRICA [Suspect]
     Active Substance: PREGABALIN
     Indication: PAIN
     Dosage: 150 MG, 3X/DAY
     Route: 048
     Dates: start: 20150312
  3. LYRICA [Suspect]
     Active Substance: PREGABALIN
     Dosage: 150 MG, 3X/DAY
  4. LYRICA [Suspect]
     Active Substance: PREGABALIN
     Indication: RADICULAR PAIN
     Dosage: 2 DF, 1X/DAY

REACTIONS (4)
  - Hypoaesthesia [Unknown]
  - Intentional product use issue [Unknown]
  - Pneumonia [Recovered/Resolved]
  - Gait disturbance [Unknown]

NARRATIVE: CASE EVENT DATE: 201605
